FAERS Safety Report 26157831 (Version 1)
Quarter: 2025Q4

REPORT INFORMATION
  Report Type: Spontaneous
  Country: US (occurrence: None)
  Receive Date: 20251215
  Receipt Date: 20251215
  Transmission Date: 20260117
  Serious: Yes (Life-Threatening, Hospitalization)
  Sender: FDA-CTU
  Company Number: None

PATIENT
  Age: 77 Year
  Sex: Male
  Weight: 86.1 kg

DRUGS (1)
  1. DAPTOMYCIN [Suspect]
     Active Substance: DAPTOMYCIN
     Dosage: FREQUENCY : DAILY;
     Dates: start: 20250612, end: 20250703

REACTIONS (10)
  - Leg amputation [None]
  - Therapy interrupted [None]
  - Pain [None]
  - Eosinophilic pneumonia [None]
  - Pyrexia [None]
  - Cough [None]
  - Lung opacity [None]
  - Atelectasis [None]
  - Pulmonary septal thickening [None]
  - Pleural cyst [None]

NARRATIVE: CASE EVENT DATE: 20250704
